FAERS Safety Report 8949706 (Version 1)
Quarter: 2012Q4

REPORT INFORMATION
  Report Type: 
  Country: None (occurrence: US)
  Receive Date: 20121206
  Receipt Date: 20121206
  Transmission Date: 20130627
  Serious: No
  Sender: FDA-Public Use
  Company Number: US-TEVA-374265USA

PATIENT
  Sex: Male
  Weight: 80.81 kg

DRUGS (4)
  1. PROAIR HFA [Suspect]
     Dosage: prn
     Route: 055
  2. SYMBICORT [Concomitant]
     Dosage: 4 puffs
  3. SPIRIVA [Concomitant]
  4. ALBUTEROL [Concomitant]
     Route: 055

REACTIONS (1)
  - Drug effect delayed [Not Recovered/Not Resolved]
